FAERS Safety Report 16891617 (Version 1)
Quarter: 2019Q4

REPORT INFORMATION
  Report Type: Spontaneous
  Country: US (occurrence: US)
  Receive Date: 20191007
  Receipt Date: 20191007
  Transmission Date: 20200122
  Serious: No
  Sender: FDA-Public Use
  Company Number: US-009507513-1910USA001391

PATIENT
  Sex: Female

DRUGS (4)
  1. PROGESTERONE. [Concomitant]
     Active Substance: PROGESTERONE
     Dosage: UNK
  2. LEUPROLIDE [Concomitant]
     Active Substance: LEUPROLIDE
     Dosage: UNK
  3. FOLLISTIM AQ [Suspect]
     Active Substance: FOLLITROPIN
     Indication: INFERTILITY FEMALE
     Dosage: AS DIRECTED, QD. CONCENTRATION: 300 IU
     Route: 058
     Dates: start: 20190703
  4. PUREGON PEN [DEVICE] [Suspect]
     Active Substance: DEVICE

REACTIONS (2)
  - Injection site mass [Unknown]
  - Injection site pruritus [Unknown]

NARRATIVE: CASE EVENT DATE: 2019
